FAERS Safety Report 9033218 (Version 1)
Quarter: 2013Q1

REPORT INFORMATION
  Report Type: Spontaneous
  Country: FR (occurrence: FR)
  Receive Date: 20130128
  Receipt Date: 20130128
  Transmission Date: 20140127
  Serious: Yes (Hospitalization)
  Sender: FDA-Public Use
  Company Number: FR-PFIZER INC-2013029032

PATIENT
  Age: 62 Year
  Sex: Female
  Weight: 65 kg

DRUGS (3)
  1. CARBOPLATIN [Suspect]
     Indication: NEOPLASM MALIGNANT
     Dosage: 400 MG, SINGLE
     Route: 042
     Dates: start: 20121107, end: 20121107
  2. ZOPHREN [Suspect]
     Dosage: 8 MG, SINGLE
     Route: 042
     Dates: start: 20121107, end: 20121107
  3. SOLU-MEDROL [Concomitant]
     Indication: NEOPLASM MALIGNANT
     Dosage: 40 MG, SINGLE
     Route: 042
     Dates: start: 20121107, end: 20121107

REACTIONS (6)
  - Hypotension [Recovered/Resolved]
  - Erythema [Recovered/Resolved]
  - Diarrhoea [Recovered/Resolved]
  - Vomiting [Recovered/Resolved]
  - Asthenia [Recovered/Resolved]
  - Chills [Recovered/Resolved]
